FAERS Safety Report 8561382-2 (Version None)
Quarter: 2012Q3

REPORT INFORMATION
  Report Type: 
  Country: None (occurrence: None)
  Receive Date: 20120802
  Receipt Date: 20120723
  Transmission Date: 20120928
  Serious: Yes (Hospitalization)
  Sender: FDA-Public Use
  Company Number: US-GLAXOSMITHKLINE-A0844979A

PATIENT
  Age: 41 Year
  Sex: Male
  Weight: 118.2 kg

DRUGS (3)
  1. GLUCOPHAGE [Concomitant]
  2. AVANDAMET [Suspect]
     Indication: DIABETES MELLITUS
     Dosage: 1TAB TWICE PER DAY
     Route: 048
     Dates: start: 20081218, end: 20090501
  3. PRINZIDE [Concomitant]

REACTIONS (4)
  - CARDIAC ARREST [None]
  - MYOCARDIAL INFARCTION [None]
  - MUSCLE DISORDER [None]
  - NERVOUS SYSTEM DISORDER [None]
